FAERS Safety Report 10302614 (Version 3)
Quarter: 2014Q3

REPORT INFORMATION
  Report Type: Spontaneous
  Country: US (occurrence: US)
  Receive Date: 20140714
  Receipt Date: 20140825
  Transmission Date: 20150326
  Serious: Yes (Disabling)
  Sender: FDA-Public Use
  Company Number: US-PERRIGO-12US007650

PATIENT
  Age: 52 Year
  Sex: Female
  Weight: 58.96 kg

DRUGS (16)
  1. MICONAZOLE NITRATE EXT CRM 2% 861 199 [Suspect]
     Active Substance: MICONAZOLE NITRATE
     Indication: VULVOVAGINAL MYCOTIC INFECTION
     Dosage: ONE APPLICATION, SINGLE
     Route: 061
     Dates: start: 20120827, end: 20120827
  2. AMITIZA [Concomitant]
     Active Substance: LUBIPROSTONE
     Indication: IRRITABLE BOWEL SYNDROME
     Dosage: 24 MCG, BID
     Route: 048
     Dates: start: 2012
  3. MICONAZOLE NITRATE SUPP 1200 MG 109 199 [Suspect]
     Active Substance: MICONAZOLE NITRATE
     Indication: VULVOVAGINAL MYCOTIC INFECTION
     Dosage: 1200 MG, SINGLE
     Route: 067
     Dates: start: 20120827, end: 20120827
  4. MIACALCIN [Concomitant]
     Active Substance: CALCITONIN SALMON
     Indication: OSTEOPOROSIS
     Dosage: 200 U/ML, 1 SPRAY QD, ALTERNATE NOSTRILS QOD
     Route: 045
     Dates: start: 2004
  5. PERCOCET [Concomitant]
     Active Substance: ACETAMINOPHEN\OXYCODONE HYDROCHLORIDE
     Indication: FIBROMYALGIA
     Dosage: 7.5/500 MG, 1 TO 2 TABLETS BID, PRN
     Route: 048
  6. MICONAZOLE NITRATE SUPP 1200 MG 109 199 [Suspect]
     Active Substance: MICONAZOLE NITRATE
     Indication: VULVOVAGINAL PRURITUS
  7. VITAMIN D3 [Concomitant]
     Active Substance: CHOLECALCIFEROL
     Indication: VITAMIN D DEFICIENCY
     Dosage: 50000 UNITS, ONCE MONTHLY
     Route: 048
     Dates: start: 2012
  8. MIRALAX [Concomitant]
     Active Substance: POLYETHYLENE GLYCOL 3350
     Indication: CONSTIPATION
     Dosage: 1 SCOOP DAILY IN 8 OZ. OF WATER
     Route: 048
     Dates: start: 2012
  9. COL RITE STOOL SOFTENER [Concomitant]
     Indication: FAECES HARD
     Dosage: 50 MG, PRN
     Route: 065
     Dates: start: 2012
  10. CYMBALTA [Concomitant]
     Active Substance: DULOXETINE HYDROCHLORIDE
     Indication: FIBROMYALGIA
     Dosage: 90 MG, QD
     Route: 048
     Dates: start: 2009
  11. MICONAZOLE NITRATE SUPP 1200 MG 109 199 [Suspect]
     Active Substance: MICONAZOLE NITRATE
     Indication: VULVOVAGINAL BURNING SENSATION
  12. MICONAZOLE NITRATE EXT CRM 2% 861 199 [Suspect]
     Active Substance: MICONAZOLE NITRATE
     Indication: VULVOVAGINAL BURNING SENSATION
  13. ANTIDEPRESSANTS [Concomitant]
     Active Substance: UNSPECIFIED INGREDIENT
     Indication: DEPRESSION
     Dosage: LOW DOSE TRICYCLIC
     Route: 048
  14. MICONAZOLE NITRATE EXT CRM 2% 861 199 [Suspect]
     Active Substance: MICONAZOLE NITRATE
     Indication: VULVOVAGINAL PRURITUS
  15. HYDROCODONE [Concomitant]
     Active Substance: HYDROCODONE
     Indication: FIBROMYALGIA
     Dosage: UNK
     Route: 048
     Dates: start: 2003
  16. AMBIEN [Concomitant]
     Active Substance: ZOLPIDEM TARTRATE
     Indication: PRODUCT USED FOR UNKNOWN INDICATION
     Dosage: 10 MG, AT BEDTIME, PRN
     Route: 048

REACTIONS (15)
  - Condition aggravated [Unknown]
  - Vaginal mucosal blistering [Unknown]
  - Vaginal infection [Unknown]
  - Chemical injury [Recovering/Resolving]
  - Anxiety [Unknown]
  - Vaginal haemorrhage [Recovered/Resolved]
  - Dyspareunia [Not Recovered/Not Resolved]
  - Vaginal exfoliation [Unknown]
  - Vulvovaginal swelling [Recovered/Resolved]
  - Vulvovaginal pain [Not Recovered/Not Resolved]
  - Vulvovaginal erythema [Recovered/Resolved]
  - Abdominal pain lower [Unknown]
  - Vulvovaginal discomfort [Not Recovered/Not Resolved]
  - Infection susceptibility increased [Unknown]
  - Genital lesion [Recovering/Resolving]

NARRATIVE: CASE EVENT DATE: 201208
